FAERS Safety Report 20859535 (Version 1)
Quarter: 2022Q2

REPORT INFORMATION
  Report Type: Other
  Country: JP (occurrence: JP)
  Receive Date: 20220523
  Receipt Date: 20220523
  Transmission Date: 20220721
  Serious: Yes (Hospitalization)
  Sender: FDA-Public Use
  Company Number: JP-CHUGAI-2022017503

PATIENT
  Age: 63 Year
  Sex: Female
  Weight: 40.3 kg

DRUGS (7)
  1. ATEZOLIZUMAB [Suspect]
     Active Substance: ATEZOLIZUMAB
     Indication: Lung adenocarcinoma
     Dosage: 1200 MILLIGRAM, QD
     Route: 041
     Dates: start: 20211206, end: 20211206
  2. AVASTIN [Concomitant]
     Active Substance: BEVACIZUMAB
     Indication: Lung adenocarcinoma
     Dosage: 604 MILLIGRAM
     Route: 041
     Dates: start: 20211206
  3. AVASTIN [Concomitant]
     Active Substance: BEVACIZUMAB
     Dosage: 555 MILLIGRAM, ONCE/3WEEKS
     Route: 041
     Dates: start: 20220207
  4. CARBOPLATIN [Concomitant]
     Active Substance: CARBOPLATIN
     Indication: Lung adenocarcinoma
     Dosage: 470 MILLIGRAM
     Route: 041
     Dates: start: 20211206
  5. CARBOPLATIN [Concomitant]
     Active Substance: CARBOPLATIN
     Dosage: 460 MILLIGRAM, ONCE/3WEEKS
     Route: 041
     Dates: start: 20220207
  6. PACLITAXEL [Concomitant]
     Active Substance: PACLITAXEL
     Indication: Lung adenocarcinoma
     Dosage: 240 MILLIGRAM
     Route: 041
     Dates: start: 20211206
  7. PACLITAXEL [Concomitant]
     Active Substance: PACLITAXEL
     Dosage: 230 MILLIGRAM, ONCE/3WEEKS
     Route: 041
     Dates: start: 20220207

REACTIONS (1)
  - Dermatomyositis [Recovering/Resolving]

NARRATIVE: CASE EVENT DATE: 20211209
